FAERS Safety Report 14026300 (Version 1)
Quarter: 2017Q3

REPORT INFORMATION
  Report Type: Spontaneous
  Country: JP (occurrence: JP)
  Receive Date: 20170929
  Receipt Date: 20170929
  Transmission Date: 20171128
  Serious: Yes (Death)
  Sender: FDA-Public Use
  Company Number: JP-CURIUM PHARMACEUTICALS-201700232

PATIENT
  Age: 46 Year
  Sex: Male

DRUGS (1)
  1. OCTREOSCAN [Suspect]
     Active Substance: INDIUM IN-111 CHLORIDE\INDIUM IN-111 PENTETREOTIDE
     Indication: SOMATOSTATIN RECEPTOR SCAN
     Route: 042
     Dates: start: 20160615, end: 20160615

REACTIONS (1)
  - Pituitary cancer metastatic [Fatal]

NARRATIVE: CASE EVENT DATE: 20161220
